FAERS Safety Report 6986245-5 (Version None)
Quarter: 2010Q3

REPORT INFORMATION
  Report Type: 
  Country: None (occurrence: None)
  Receive Date: 20100915
  Receipt Date: 20090612
  Transmission Date: 20110219
  Serious: No
  Sender: FDA-Public Use
  Company Number: US-WYE-H09748409

PATIENT
  Sex: Female
  Weight: 79.45 kg

DRUGS (5)
  1. PRISTIQ [Suspect]
     Indication: DEPRESSION
     Route: 048
     Dates: start: 20090505, end: 20090522
  2. PRISTIQ [Suspect]
     Route: 048
     Dates: start: 20090523
  3. LORAZEPAM [Concomitant]
  4. SEROQUEL [Concomitant]
  5. NEXIUM [Concomitant]

REACTIONS (2)
  - DIARRHOEA [None]
  - NAUSEA [None]
